FAERS Safety Report 7012398-9 (Version None)
Quarter: 2010Q3

REPORT INFORMATION
  Report Type: 
  Country: None (occurrence: None)
  Receive Date: 20100924
  Receipt Date: 20100915
  Transmission Date: 20110219
  Serious: Yes (Hospitalization, Other)
  Sender: FDA-Public Use
  Company Number: ZA-ASTRAZENECA-2010SE19652

PATIENT
  Age: 58 Year
  Sex: Female

DRUGS (6)
  1. SEROQUEL XR [Suspect]
     Indication: DEPRESSION
     Route: 048
     Dates: start: 20100130
  2. SEROQUEL XR [Suspect]
     Route: 048
     Dates: start: 20100201
  3. SEROQUEL XR [Suspect]
     Route: 048
     Dates: start: 20100301
  4. SEROQUEL XR [Suspect]
     Route: 048
     Dates: start: 20100401
  5. VALPROATE SODIUM [Suspect]
     Route: 065
     Dates: start: 20100223
  6. VALPROATE SODIUM [Suspect]
     Dosage: AT THE TIME OF ADVERSE EVENT, THE DOSE WAS 200 MG IN THE MORNING AND 300 MG AT NIGHT.
     Route: 065

REACTIONS (8)
  - BURNING SENSATION [None]
  - CARDIAC DISORDER [None]
  - MENINGIOMA SURGERY [None]
  - MUSCULOSKELETAL CHEST PAIN [None]
  - MYALGIA [None]
  - NEUROPATHY PERIPHERAL [None]
  - OEDEMA [None]
  - PALPITATIONS [None]
